FAERS Safety Report 4580304-2 (Version None)
Quarter: 2005Q1

REPORT INFORMATION
  Report Type: 
  Country: None (occurrence: None)
  Receive Date: 20050127
  Receipt Date: 20041006
  Transmission Date: 20050727
  Serious: No
  Sender: FDA-Public Use
  Company Number: USA040669649

PATIENT
  Age: 7 Year
  Sex: Female
  Weight: 42 kg

DRUGS (1)
  1. STRATTERA [Suspect]
     Indication: ATTENTION DEFICIT/HYPERACTIVITY DISORDER
     Dosage: 40 MG DAY
     Dates: start: 20040530, end: 20040804

REACTIONS (4)
  - CHEST PAIN [None]
  - HEADACHE [None]
  - HEART RATE INCREASED [None]
  - RESPIRATORY RATE INCREASED [None]
